FAERS Safety Report 10674698 (Version 1)
Quarter: 2014Q4

REPORT INFORMATION
  Report Type: Spontaneous
  Country: CA (occurrence: CA)
  Receive Date: 20141224
  Receipt Date: 20141224
  Transmission Date: 20150529
  Serious: Yes (Hospitalization)
  Sender: FDA-Public Use
  Company Number: CA-ASTELLAS-2014US020721

PATIENT
  Age: 31 Year
  Sex: Female

DRUGS (1)
  1. PROGRAF [Suspect]
     Active Substance: TACROLIMUS\TACROLIMUS ANHYDROUS
     Indication: LIVER TRANSPLANT
     Dosage: 10 MG, DAILY
     Route: 048
     Dates: start: 20141112

REACTIONS (2)
  - Unevaluable event [Unknown]
  - Drug effect prolonged [Unknown]

NARRATIVE: CASE EVENT DATE: 20141112
